FAERS Safety Report 7466275-X (Version None)
Quarter: 2011Q2

REPORT INFORMATION
  Report Type: 
  Country: None (occurrence: None)
  Receive Date: 20110509
  Receipt Date: 20110429
  Transmission Date: 20111010
  Serious: Yes (Hospitalization, Other)
  Sender: FDA-Public Use
  Company Number: US-JNJFOC-20100901288

PATIENT
  Sex: Female

DRUGS (4)
  1. LEVAQUIN [Suspect]
     Indication: HYSTERECTOMY
     Route: 048
  2. LEVAQUIN [Suspect]
     Indication: INFLAMMATION
     Route: 048
  3. LEVAQUIN [Suspect]
     Indication: CARDIAC OPERATION
     Route: 048
  4. LEVAQUIN [Suspect]
     Indication: STAPHYLOCOCCAL INFECTION
     Route: 048

REACTIONS (9)
  - STEVENS-JOHNSON SYNDROME [None]
  - THROMBOSIS [None]
  - ERYTHEMA [None]
  - PRURITUS [None]
  - HEADACHE [None]
  - RASH [None]
  - AMNESIA [None]
  - SWELLING [None]
  - URTICARIA [None]
